FAERS Safety Report 7649523-2 (Version None)
Quarter: 2011Q3

REPORT INFORMATION
  Report Type: 
  Country: None (occurrence: None)
  Receive Date: 20110727
  Receipt Date: 20110711
  Transmission Date: 20111222
  Serious: Yes (Other)
  Sender: FDA-Public Use
  Company Number: 2011MA008586

PATIENT
  Age: 71 Year
  Sex: Male

DRUGS (4)
  1. ACYCLOVIR [Concomitant]
  2. BENDAMUSTINE [Concomitant]
  3. CIPROFLAXACIN [Concomitant]
  4. SULFATRIM PEDIATRIC [Suspect]
     Indication: PRODUCT USED FOR UNKNOWN INDICATION

REACTIONS (6)
  - HAEMOGLOBIN DECREASED [None]
  - WHITE BLOOD CELL COUNT DECREASED [None]
  - BONE MARROW LEUKAEMIC CELL INFILTRATION [None]
  - NEUTROPHIL PELGER-HUET ANOMALY PRESENT [None]
  - NEUTROPHIL COUNT DECREASED [None]
  - PLATELET COUNT DECREASED [None]
